FAERS Safety Report 8287005-8 (Version None)
Quarter: 2012Q2

REPORT INFORMATION
  Report Type: 
  Country: None (occurrence: None)
  Receive Date: 20120416
  Receipt Date: 20120409
  Transmission Date: 20120825
  Serious: Yes (Hospitalization)
  Sender: FDA-Public Use
  Company Number: US-UCBSA-054483

PATIENT
  Age: 27 Year
  Sex: Male
  Weight: 93.9 kg

DRUGS (17)
  1. CIMZIA [Suspect]
     Indication: CROHN'S DISEASE
     Route: 058
     Dates: start: 20110201, end: 20120101
  2. FISH OIL [Concomitant]
  3. PENTASA [Concomitant]
     Dates: start: 20100301
  4. REMICADE [Concomitant]
     Dates: start: 20050101
  5. PREDNISONE [Concomitant]
     Dates: start: 20070101
  6. VITAMIN D [Concomitant]
  7. CALCIUM CARBONATE [Concomitant]
  8. METRONIDAZOLE [Concomitant]
     Dates: start: 20100301
  9. PENTASA [Concomitant]
  10. FLAGYL [Concomitant]
     Route: 048
  11. CIMZIA [Suspect]
     Dosage: INDUCTION DOSE
     Route: 058
     Dates: start: 20110101, end: 20110201
  12. PREDNISONE [Concomitant]
     Dosage: DOSE TAPERED
     Dates: end: 20070101
  13. PREDNISONE [Concomitant]
     Route: 048
     Dates: start: 20100301
  14. PREDNISONE [Concomitant]
     Dosage: DAILY DOSE:10 MG
  15. CIPROFLOXACIN HCL [Concomitant]
     Route: 048
  16. CORTICOSTEROIDS [Concomitant]
  17. AZATHIOPRINE [Concomitant]
     Dates: start: 20050101

REACTIONS (5)
  - PERIRECTAL ABSCESS [None]
  - DERMATITIS PSORIASIFORM [None]
  - PYREXIA [None]
  - SURGERY [None]
  - HYPERTENSION [None]
